FAERS Safety Report 9265563 (Version 1)
Quarter: 2013Q2

REPORT INFORMATION
  Report Type: Spontaneous
  Country: US (occurrence: US)
  Receive Date: 20130501
  Receipt Date: 20130501
  Transmission Date: 20140414
  Serious: No
  Sender: FDA-Public Use
  Company Number: US-BAYER-2013-053652

PATIENT
  Age: 49 Year
  Sex: Female
  Weight: 88.44 kg

DRUGS (6)
  1. BETASERON [Suspect]
     Dosage: 0.25 MG, QOD
     Route: 058
     Dates: end: 201302
  2. VITAMIN D [Concomitant]
     Dosage: 1000 U, UNK
  3. BUPROPION [Concomitant]
     Dosage: 75 MG, UNK
  4. VITAMIN B12 [Concomitant]
     Dosage: 1000 CR
  5. MULTIVITAMIN [Concomitant]
  6. FISH OIL [Concomitant]

REACTIONS (1)
  - Depression [Unknown]
